FAERS Safety Report 9727624 (Version 5)
Quarter: 2015Q2

REPORT INFORMATION
  Report Type: Spontaneous
  Country: FR (occurrence: FR)
  Receive Date: 20131203
  Receipt Date: 20150611
  Transmission Date: 20150821
  Serious: Yes (Other)
  Sender: FDA-Public Use
  Company Number: FR-ABBVIE-11P-056-0717804-00

PATIENT
  Sex: Female

DRUGS (1)
  1. DEPAKINE [Suspect]
     Active Substance: VALPROATE SODIUM
     Indication: MATERNAL EXPOSURE TIMING UNSPECIFIED
     Route: 064

REACTIONS (11)
  - Oppositional defiant disorder [Recovering/Resolving]
  - Foetal exposure during pregnancy [Unknown]
  - Psychomotor skills impaired [Unknown]
  - Crying [Recovering/Resolving]
  - Mild mental retardation [Unknown]
  - Autism spectrum disorder [Recovering/Resolving]
  - Speech disorder [Unknown]
  - Abnormal behaviour [Recovering/Resolving]
  - Anxiety [Unknown]
  - Autism spectrum disorder [Unknown]
  - Communication disorder [Unknown]
